FAERS Safety Report 8824547 (Version 1)
Quarter: 2012Q4

REPORT INFORMATION
  Report Type: 
  Country: IT (occurrence: IT)
  Receive Date: 20121004
  Receipt Date: 20121004
  Transmission Date: 20130627
  Serious: Yes (Hospitalization)
  Sender: FDA-Public Use
  Company Number: IT-SANOFI-AVENTIS-2012SA070346

PATIENT
  Age: 76 Year
  Sex: Male

DRUGS (17)
  1. RIFADIN [Suspect]
     Indication: DRUG USE FOR UNKNOWN INDICATION
     Route: 048
     Dates: start: 20120815, end: 20120817
  2. LEVOXACIN [Suspect]
     Indication: DRUG USE FOR UNKNOWN INDICATION
     Dosage: strength: 500 mg
     Route: 048
     Dates: start: 20120815, end: 20120817
  3. CEFDITOREN PIVOXIL [Suspect]
     Indication: DRUG USE FOR UNKNOWN INDICATION
     Dosage: strength: 200 mg
     Route: 048
     Dates: start: 20120815, end: 20120817
  4. LANSOPRAZOLE [Concomitant]
     Route: 048
  5. LACTULOSE [Concomitant]
     Route: 048
  6. MIRTAZAPINE [Concomitant]
     Route: 048
  7. GUTRON [Concomitant]
     Dosage: strength: 2.5mg/ml
form: oral drops
     Route: 048
  8. INTRAFER [Concomitant]
     Dosage: strength: 50mg/ml
form: oral drops
     Route: 048
     Dates: start: 20120815, end: 20120817
  9. KCL [Concomitant]
     Dosage: strength: 600 mg
     Route: 048
  10. SOBREROL [Concomitant]
     Dosage: strength: 8.7/100 ml
form: oral drops
     Route: 048
  11. CLOPIXOL [Concomitant]
     Dosage: strength: 20 mg/ml
form: oral drops
     Route: 048
  12. DISIPAL [Concomitant]
     Dosage: strength: 50mg
     Route: 048
  13. GASTROGEL [Concomitant]
     Dosage: strength: 2g/10ml
     Route: 048
  14. MADOPAR [Concomitant]
     Dosage: strength: 200mg+50mg
     Route: 048
  15. RIFACOL [Concomitant]
     Dosage: strength: 2g/100ml
     Route: 048
  16. VALIUM [Concomitant]
     Dosage: form: oral drops
strength: 5mg/ml
     Route: 048
  17. MICONAZOLE [Concomitant]
     Dosage: strength: 2%
     Route: 048

REACTIONS (3)
  - Melaena [Unknown]
  - Hypotension [Unknown]
  - Diarrhoea [Unknown]
